FAERS Safety Report 6939921-4 (Version None)
Quarter: 2010Q3

REPORT INFORMATION
  Report Type: 
  Country: None (occurrence: None)
  Receive Date: 20100825
  Receipt Date: 20100813
  Transmission Date: 20110219
  Serious: Yes (Other)
  Sender: FDA-Public Use
  Company Number: FR-PFIZER INC-2010101995

PATIENT
  Age: 77 Year
  Sex: Female

DRUGS (1)
  1. AROMASIN [Suspect]
     Dosage: UNK
     Dates: start: 20100401, end: 20100801

REACTIONS (3)
  - CUTANEOUS LUPUS ERYTHEMATOSUS [None]
  - PHOTOSENSITIVITY REACTION [None]
  - TOXIC SKIN ERUPTION [None]
